FAERS Safety Report 6063953-4 (Version None)
Quarter: 2009Q1

REPORT INFORMATION
  Report Type: 
  Country: None (occurrence: None)
  Receive Date: 20090204
  Receipt Date: 20090127
  Transmission Date: 20090719
  Serious: Yes (Hospitalization)
  Sender: FDA-Public Use
  Company Number: PHBS2005CH16643

PATIENT
  Age: 90 Year
  Sex: Female

DRUGS (16)
  1. TEGRETOL [Interacting]
     Indication: TRIGEMINAL NEURALGIA
     Dosage: 200 MG, BID
     Route: 065
     Dates: start: 19980101, end: 20040826
  2. PHYSIOTENS [Interacting]
     Indication: HYPERTENSION
  3. THIAZIDES [Interacting]
  4. CALCIUM CHANNEL BLOCKERS [Interacting]
  5. ACE INHIBITORS AND DIURETICS [Interacting]
  6. ATACAND [Suspect]
     Indication: HYPERTENSION
     Dates: start: 20040807, end: 20040812
  7. ATACAND HCT [Suspect]
     Indication: HYPERTENSION
     Dosage: 16 MG/DAY
     Route: 065
     Dates: start: 20040813, end: 20040824
  8. CARVEDILOL [Suspect]
     Dosage: 12.5 MG/DAY
     Route: 065
     Dates: start: 20040806, end: 20040821
  9. TORASEMIDE (NGX) [Suspect]
     Dosage: 5 MG/DAY
     Route: 065
     Dates: end: 20040820
  10. NORVASC [Suspect]
     Indication: HYPERTENSION
     Dosage: 10 MG/DAY
     Route: 065
     Dates: start: 20040815
  11. NITRODERM [Concomitant]
     Indication: ANGINA PECTORIS
     Dosage: 10 MG/DAY
     Route: 062
  12. RIVOTRIL [Concomitant]
     Indication: TRIGEMINAL NEURALGIA
     Dosage: 1 MG/DAY
     Route: 065
     Dates: start: 20040827
  13. PLAVIX [Concomitant]
     Indication: PROPHYLAXIS
     Dosage: 75 MG/DAY
     Route: 065
  14. TOLVON [Concomitant]
     Indication: DEPRESSION
     Dosage: 30 MG/DAY
     Route: 065
     Dates: start: 20040807
  15. PRAVASTATIN [Concomitant]
     Indication: HYPERLIPIDAEMIA
     Dosage: 10 MG/DAY
     Route: 065
  16. STILNOX [Concomitant]
     Indication: INSOMNIA
     Dosage: 7.5 MG/DAY
     Route: 065

REACTIONS (6)
  - BLOOD PRESSURE SYSTOLIC INCREASED [None]
  - CARDIAC FAILURE [None]
  - DRUG INEFFECTIVE [None]
  - DRUG INTERACTION [None]
  - HYPERTENSION [None]
  - LEFT VENTRICULAR HYPERTROPHY [None]
